FAERS Safety Report 8069184-0 (Version None)
Quarter: 2012Q1

REPORT INFORMATION
  Report Type: 
  Country: None (occurrence: None)
  Receive Date: 20120125
  Receipt Date: 20120117
  Transmission Date: 20120608
  Serious: Yes (Other)
  Sender: FDA-Public Use
  Company Number: US-CELGENEUS-163-21880-11081342

PATIENT
  Sex: Female
  Weight: 66.738 kg

DRUGS (10)
  1. AZILECT [Concomitant]
     Route: 065
  2. CYLEXA [Concomitant]
     Route: 065
  3. REVLIMID [Suspect]
     Dosage: 25 MILLIGRAM
     Route: 048
     Dates: start: 20110812, end: 20111102
  4. MEDROL [Concomitant]
     Route: 065
  5. BENICAR HCT [Concomitant]
     Route: 065
  6. CALCIUM [Concomitant]
     Route: 065
  7. ATENOLOL [Concomitant]
     Route: 065
  8. SINEMET [Concomitant]
     Route: 065
  9. REVLIMID [Suspect]
     Indication: MULTIPLE MYELOMA
     Dosage: 10 MILLIGRAM
     Route: 048
     Dates: start: 20101229, end: 20110812
  10. ASPIRIN [Concomitant]
     Route: 065

REACTIONS (2)
  - BREAST CANCER [None]
  - MULTIPLE MYELOMA [None]
